FAERS Safety Report 18007502 (Version 2)
Quarter: 2020Q3

REPORT INFORMATION
  Report Type: Spontaneous
  Country: US (occurrence: US)
  Receive Date: 20200710
  Receipt Date: 20200924
  Transmission Date: 20201103
  Serious: Yes (Hospitalization)
  Sender: FDA-Public Use
  Company Number: US-PFIZER INC-2016492680

PATIENT
  Age: 72 Year
  Sex: Female

DRUGS (30)
  1. ANTIVERT [Concomitant]
     Active Substance: MECLIZINE HYDROCHLORIDE
     Dosage: 25 MG, AS NEEDED (3 TIMES DAILY)
     Route: 048
  2. BIOTIN [Concomitant]
     Active Substance: BIOTIN
     Dosage: 300 UG, DAILY
     Route: 048
  3. DEMADEX [Concomitant]
     Active Substance: TORSEMIDE
     Dosage: 10 MG, DAILY
     Route: 048
  4. INDOCIN [Concomitant]
     Active Substance: INDOMETHACIN
     Indication: GOUT
     Dosage: 25 MG, 3X/DAY
     Route: 048
  5. LOVENOX [Concomitant]
     Active Substance: ENOXAPARIN SODIUM
     Dosage: 90 MG, 2X/DAY
     Route: 058
  6. PRAVACHOL [Concomitant]
     Active Substance: PRAVASTATIN SODIUM
     Dosage: 20 MG, 1X/DAY (EVERY EVENING)
     Route: 048
  7. VICODIN [Concomitant]
     Active Substance: ACETAMINOPHEN\HYDROCODONE BITARTRATE
     Dosage: 1 DF, [HYDROCODONE BITARTRATE: 5 MG, PARACETAMOL: 500 MG], EVERY 4 HRS, AS NEEDED OCCASIONAL USE
     Route: 048
  8. ADVAIR HFA [Concomitant]
     Active Substance: FLUTICASONE PROPIONATE\SALMETEROL XINAFOATE
     Dosage: 1 DF, 2X/DAY (500?50 MCG/DOSE DISKUS INHALER)
     Route: 045
  9. ALDACTONE [Concomitant]
     Active Substance: SPIRONOLACTONE
     Dosage: 12.5 MG, DAILY
     Route: 048
  10. AUGMENTIN [Concomitant]
     Active Substance: AMOXICILLIN\CLAVULANATE POTASSIUM
     Dosage: 1 DF, 2X/DAY [AMOXICILLIN SODIUM: 875 MG, CLAVULANATE POTASSIUM: 125 MG]
     Route: 048
  11. COUMADINE [Concomitant]
     Active Substance: WARFARIN SODIUM
     Dosage: 3 MG, DAILY (AS DIRECTED)
     Route: 048
  12. LEVOTHYROXINE SODIUM. [Concomitant]
     Active Substance: LEVOTHYROXINE SODIUM
     Dosage: 125 UG, UNK
     Route: 048
  13. MULTIVITAMIN + MINERAL [Concomitant]
     Active Substance: MINERALS\VITAMINS
     Dosage: 1 DF, DAILY
     Route: 048
  14. REVATIO [Suspect]
     Active Substance: SILDENAFIL CITRATE
     Dosage: 20 MG, 3X/DAY
     Route: 048
  15. CALTRATE 600+D [Concomitant]
     Dosage: 1 DF, 2X/DAY [CALCIUM CARBONATE: 600MG, COLECALCIFEROL: 400MG]
     Route: 048
  16. TAMBOCOR [Concomitant]
     Active Substance: FLECAINIDE ACETATE
     Indication: ATRIAL FIBRILLATION
     Dosage: 100 MG, UNK (REPEAT AFTER 30 MINUTES IF NECESSARY)
  17. VITAMIN D3 [Concomitant]
     Active Substance: CHOLECALCIFEROL
     Dosage: 1000 IU, 1X/DAY
     Route: 048
  18. VITAMIN C ACID [Concomitant]
     Active Substance: ASCORBIC ACID
     Dosage: 500 MG, 1X/DAY
     Route: 048
  19. DILTIAZEM. [Concomitant]
     Active Substance: DILTIAZEM
     Dosage: 240 MG, 1X/DAY
     Route: 048
  20. FOLVITE [Concomitant]
     Active Substance: FOLIC ACID
     Dosage: 1 MG, DAILY
     Route: 048
  21. REVATIO [Suspect]
     Active Substance: SILDENAFIL CITRATE
     Indication: PULMONARY HYPERTENSION
     Dosage: 40 MG, 3X/DAY (20MG TABLET TWO OF THEM 3 TIMES A DAY)
     Route: 048
  22. AMOXIL [Concomitant]
     Active Substance: AMOXICILLIN
     Dosage: 2000 MG, UNK (TAKE 2000 MG BY MOUTH ONCE. ONE HOUR PRIOR TO DENTIST)
     Route: 048
  23. COZAAR [Concomitant]
     Active Substance: LOSARTAN POTASSIUM
     Dosage: 50 MG, DAILY
     Route: 048
  24. OMEPRAZOLE. [Concomitant]
     Active Substance: OMEPRAZOLE
     Dosage: 40 MG, 2X/DAY (30?60 MINUTES BEFORE A MEAL)
     Route: 048
  25. ZINCATE [Concomitant]
     Dosage: 220 MG, 1X/DAY
     Route: 048
  26. NORCO [Concomitant]
     Active Substance: ACETAMINOPHEN\HYDROCODONE BITARTRATE
     Indication: PAIN
     Dosage: UNK, AS NEEDED [HYDROCODONE: 5MG, ACETAMINOPHEN: 325 MG], AS NEEDED, 1?2 TABLET; EVERY 4 HOURS)
     Route: 048
  27. VITAMIN B12 [Concomitant]
     Active Substance: CYANOCOBALAMIN
     Dosage: 1000 UG, DAILY
     Route: 048
  28. ALBUTEROL. [Concomitant]
     Active Substance: ALBUTEROL
     Dosage: 0.083 %, TAKE 1 AMPULE BY NEBULIZATION EVERY 4 HOURS AS NEEDED
     Route: 045
  29. COMBIVENT [Concomitant]
     Active Substance: ALBUTEROL SULFATE\IPRATROPIUM BROMIDE
     Dosage: 2 DF, AS NEEDED (18?103 MCG/ACT INHALER, INHALE 2 PUFFS INTO THE LUNGS EVERY 6 HOURS AS NEEDED)
     Route: 045
  30. SENOKOT?S [Concomitant]
     Active Substance: DOCUSATE SODIUM\SENNOSIDES
     Indication: CONSTIPATION
     Dosage: UNK, AS NEEDED [DOCUSATE SODIUM: 8.6MG, SENNA ALEXANDRINA: 50MG], TAKE 1 TABLET; 2 TIMES DAILY
     Route: 048

REACTIONS (6)
  - Fall [Recovering/Resolving]
  - Device dislocation [Recovering/Resolving]
  - Pain [Recovering/Resolving]
  - Hip fracture [Recovering/Resolving]
  - Off label use [Unknown]
  - Product use issue [Unknown]

NARRATIVE: CASE EVENT DATE: 20200508
